FAERS Safety Report 15413921 (Version 1)
Quarter: 2018Q3

REPORT INFORMATION
  Report Type: Spontaneous
  Country: US (occurrence: US)
  Receive Date: 20180921
  Receipt Date: 20180921
  Transmission Date: 20181010
  Serious: Yes (Other)
  Sender: FDA-Public Use
  Company Number: US-NOVOPROD-595954

PATIENT
  Age: 64 Year
  Sex: Male

DRUGS (1)
  1. VICTOZA [Suspect]
     Active Substance: LIRAGLUTIDE
     Indication: TYPE 2 DIABETES MELLITUS
     Dosage: 0.6 MG, QD
     Route: 058
     Dates: start: 20180305, end: 201803

REACTIONS (3)
  - Drug dose titration not performed [Recovered/Resolved]
  - Headache [Recovered/Resolved]
  - Hepatitis [Recovering/Resolving]

NARRATIVE: CASE EVENT DATE: 201803
